FAERS Safety Report 8224475-5 (Version None)
Quarter: 2012Q1

REPORT INFORMATION
  Report Type: 
  Country: None (occurrence: None)
  Receive Date: 20120321
  Receipt Date: 20120315
  Transmission Date: 20120608
  Serious: Yes (Other)
  Sender: FDA-Public Use
  Company Number: PHHY2011AU86188

PATIENT
  Sex: Male

DRUGS (3)
  1. INDAPAMIDE [Concomitant]
     Indication: HYPERTENSION
     Dosage: UNK UKN, UNK
  2. GILENYA [Suspect]
     Indication: RELAPSING-REMITTING MULTIPLE SCLEROSIS
     Dosage: UNK UKN, UNK
     Route: 048
     Dates: start: 20110923, end: 20110924
  3. NORVASC [Concomitant]
     Indication: HYPERTENSION
     Dosage: UNK UKN, UNK

REACTIONS (4)
  - BILIARY COLIC [None]
  - DELIRIUM [None]
  - AGITATION [None]
  - CONFUSIONAL STATE [None]
